FAERS Safety Report 22726048 (Version 2)
Quarter: 2024Q1

REPORT INFORMATION
  Report Type: Report from Study
  Country: US (occurrence: US)
  Receive Date: 20230720
  Receipt Date: 20240221
  Transmission Date: 20240410
  Serious: Yes (Other)
  Sender: FDA-Public Use
  Company Number: US-ABBVIE-5331614

PATIENT
  Sex: Female

DRUGS (17)
  1. VENCLEXTA [Suspect]
     Active Substance: VENETOCLAX
     Indication: Acute myeloid leukaemia
     Dosage: FORM STRENGTH: 100 MILLIGRAM?DURATION TEXT: DAY 1
     Route: 048
     Dates: start: 202306, end: 202306
  2. VENCLEXTA [Suspect]
     Active Substance: VENETOCLAX
     Indication: Acute myeloid leukaemia
     Dosage: FORM STRENGTH: 100 MILLIGRAM?DURATION TEXT: DAY 2
     Route: 048
     Dates: start: 202306, end: 202306
  3. VENCLEXTA [Suspect]
     Active Substance: VENETOCLAX
     Indication: Acute myeloid leukaemia
     Dosage: FORM STRENGTH: 100 MILLIGRAM
     Route: 048
     Dates: start: 20230626
  4. ATENOLOL [Concomitant]
     Active Substance: ATENOLOL
     Indication: Product used for unknown indication
     Dosage: 1 P.O. Q. DAY?FORM STRENGTH: 25 MILLIGRAM
     Route: 048
  5. ATORVASTATIN [Concomitant]
     Active Substance: ATORVASTATIN
     Indication: Product used for unknown indication
     Dosage: 1 P.O. Q. DAY?FORM STRENGTH: 40 MILLIGRAM
     Route: 048
  6. PROCHLORPERAZINE MALEATE [Concomitant]
     Active Substance: PROCHLORPERAZINE MALEATE
     Indication: Product used for unknown indication
     Dosage: TAKE 1 TAB Q 6 HRS, PRN NAUSEA/VOMITING?- FORM STRENGTH: 10 MILLIGRAM
     Route: 048
  7. PREDNISONE [Concomitant]
     Active Substance: PREDNISONE
     Indication: Product used for unknown indication
     Dosage: - FORM STRENGTH: 10 MILLIGRAM
     Route: 048
  8. DULOXETINE [Concomitant]
     Active Substance: DULOXETINE
     Indication: Product used for unknown indication
     Dosage: 1 P.O. Q. DAY?FORM STRENGTH: 60 MILLIGRAM
     Route: 048
  9. METFORMIN HYDROCHLORIDE [Concomitant]
     Active Substance: METFORMIN HYDROCHLORIDE
     Indication: Product used for unknown indication
     Dosage: 500 MG 24 HR TABLET, EXTENDED RELEASE?FORM STRENGTH: 500 MILLIGRAM
     Route: 048
  10. ALLOPURINOL [Concomitant]
     Active Substance: ALLOPURINOL
     Indication: Product used for unknown indication
     Dosage: 1 P.O. Q. DAY?FORM STRENGTH: 100 MILLIGRAM
     Route: 048
  11. LEVOTHYROXINE [Concomitant]
     Active Substance: LEVOTHYROXINE\LEVOTHYROXINE SODIUM
     Indication: Product used for unknown indication
     Dosage: 1 P.O. Q. DAY?FORM STRENGTH: 100 MICROGRAM
     Route: 048
  12. ONDANSETRON HYDROCHLORIDE [Concomitant]
     Active Substance: ONDANSETRON HYDROCHLORIDE
     Indication: Product used for unknown indication
     Dosage: 1 P.O. Q. 8 HOURSE (TID) PRN NAUSEA?- FORM STRENGTH: 8 MILLIGRAM
     Route: 048
  13. AZACITIDINE [Concomitant]
     Active Substance: AZACITIDINE
     Indication: Product used for unknown indication
     Dosage: D1-5, D8-9, FORM OF ADMINISTRATION- 75
     Route: 058
  14. NAPROSYN [Concomitant]
     Active Substance: NAPROXEN
     Indication: Product used for unknown indication
     Dosage: 1 P.O. TWICE A DAY (BID)?FORM STRENGTH: 500 MILLIGRAM
     Route: 048
  15. CYANOCOBALAMIN [Concomitant]
     Active Substance: CYANOCOBALAMIN
     Indication: Product used for unknown indication
     Dosage: 1 P.O. Q?FORM STRENGTH: 5000 MICROGRAM
     Route: 048
  16. VITAMIN D3 [Concomitant]
     Active Substance: CHOLECALCIFEROL
     Indication: Product used for unknown indication
     Dosage: 1 P. O. Q. DAY?FORM STRENGTH: 125 MICROGRAM
     Route: 048
  17. AMOXICILLIN [Concomitant]
     Active Substance: AMOXICILLIN
     Indication: Product used for unknown indication
     Dosage: 1 P.O. TWICE A DAY (BID) IF FEVER OF 100.4 OR HIGHER?FORM STRENGTH: 125 MILLIGRAM
     Route: 048

REACTIONS (19)
  - Myelodysplastic syndrome [Unknown]
  - Feeling abnormal [Unknown]
  - Pyrexia [Unknown]
  - Diplopia [Unknown]
  - Dyspnoea [Unknown]
  - Fatigue [Unknown]
  - Appetite disorder [Unknown]
  - Thrombocytopenia [Unknown]
  - Skin disorder [Unknown]
  - Bone pain [Unknown]
  - Nausea [Unknown]
  - Headache [Unknown]
  - White blood cell count increased [Unknown]
  - Balance disorder [Unknown]
  - Pain in extremity [Unknown]
  - Hyperhidrosis [Unknown]
  - Contusion [Unknown]
  - Paraesthesia [Unknown]
  - Anaemia [Unknown]

NARRATIVE: CASE EVENT DATE: 20230101
